FAERS Safety Report 6233675-5 (Version None)
Quarter: 2009Q2

REPORT INFORMATION
  Report Type: 
  Country: None (occurrence: None)
  Receive Date: 20090612
  Receipt Date: 20090605
  Transmission Date: 20091009
  Serious: Yes (Hospitalization)
  Sender: FDA-Public Use
  Company Number: 2009AL003718

PATIENT
  Age: 4 Year
  Sex: Female

DRUGS (2)
  1. CLOBETASOL PROPIONATE [Suspect]
     Indication: PSORIASIS
     Dosage: 10 GM;QD;TOP
     Route: 061
  2. GENTAMICIN SULFATE [Concomitant]

REACTIONS (8)
  - ABDOMINAL PAIN [None]
  - ANOREXIA [None]
  - CUSHINGOID [None]
  - HYPERTRICHOSIS [None]
  - MALAISE [None]
  - PUSTULAR PSORIASIS [None]
  - PYREXIA [None]
  - STEROID WITHDRAWAL SYNDROME [None]
